FAERS Safety Report 6712029-9 (Version None)
Quarter: 2010Q2

REPORT INFORMATION
  Report Type: 
  Country: None (occurrence: None)
  Receive Date: 20100505
  Receipt Date: 20100429
  Transmission Date: 20101027
  Serious: Yes (Death, Other)
  Sender: FDA-Public Use
  Company Number: DE-CELGENEUS-062-50794-10020937

PATIENT
  Age: 67 Year
  Sex: Male
  Weight: 81 kg

DRUGS (33)
  1. VIDAZA [Suspect]
     Route: 051
     Dates: start: 20100118, end: 20100122
  2. CYTARABINE [Suspect]
     Route: 051
     Dates: start: 20100123, end: 20100129
  3. DAUNORUBICIN HCL [Suspect]
     Route: 051
     Dates: start: 20100125, end: 20100127
  4. DEXRAZOXANE [Suspect]
     Indication: EXTRAVASATION
     Route: 051
     Dates: start: 20100129, end: 20100129
  5. DEXRAZOXANE [Suspect]
     Route: 051
     Dates: start: 20100127, end: 20100127
  6. DEXRAZOXANE [Suspect]
     Route: 051
     Dates: start: 20100128, end: 20100128
  7. NOXAFIL [Suspect]
     Indication: PROPHYLAXIS
     Route: 048
     Dates: start: 20100115, end: 20100205
  8. PANTOZOL [Suspect]
     Indication: PROPHYLAXIS
     Route: 048
     Dates: start: 20100102, end: 20100204
  9. COTRIM [Suspect]
     Indication: PROPHYLAXIS
     Route: 048
     Dates: start: 20100118, end: 20100119
  10. COTRIM [Suspect]
     Route: 065
     Dates: start: 20100121, end: 20100121
  11. COTRIM [Suspect]
     Route: 065
     Dates: start: 20100125, end: 20100125
  12. AMPHOTERICIN B [Concomitant]
     Indication: DRUG USE FOR UNKNOWN INDICATION
     Route: 065
     Dates: start: 20100204, end: 20100218
  13. RANITIDINE [Concomitant]
     Indication: DRUG USE FOR UNKNOWN INDICATION
     Route: 065
     Dates: start: 20100205, end: 20100218
  14. VANCONIN [Concomitant]
     Indication: DRUG USE FOR UNKNOWN INDICATION
     Route: 065
     Dates: start: 20100207, end: 20100207
  15. VANCONIN [Concomitant]
     Route: 065
     Dates: start: 20100208, end: 20100209
  16. VANCONIN [Concomitant]
     Route: 065
     Dates: start: 20100210, end: 20100210
  17. VANCOMYCIN [Concomitant]
     Indication: DRUG USE FOR UNKNOWN INDICATION
     Route: 065
     Dates: start: 20100203, end: 20100211
  18. VANCOMYCIN [Concomitant]
     Route: 065
     Dates: start: 20100212, end: 20100213
  19. ADDEL/CERNIVIT [Concomitant]
     Indication: DRUG USE FOR UNKNOWN INDICATION
     Route: 065
     Dates: start: 20100207, end: 20100218
  20. NOCTAMID [Concomitant]
     Indication: DRUG USE FOR UNKNOWN INDICATION
     Route: 065
     Dates: start: 20100128, end: 20100205
  21. DIPYRONE TAB [Concomitant]
     Indication: DRUG USE FOR UNKNOWN INDICATION
     Route: 065
     Dates: start: 20100207, end: 20100207
  22. DIPYRONE TAB [Concomitant]
     Route: 065
     Dates: start: 20100131, end: 20100202
  23. CIPRO [Concomitant]
     Indication: DRUG USE FOR UNKNOWN INDICATION
     Route: 065
     Dates: start: 20100116, end: 20100130
  24. CIPRO [Concomitant]
     Route: 065
     Dates: start: 20100115, end: 20100115
  25. GENTAMICIN SULFATE [Concomitant]
     Indication: DRUG USE FOR UNKNOWN INDICATION
     Route: 065
     Dates: start: 20100119, end: 20100121
  26. KEVATRIL [Concomitant]
     Indication: DRUG USE FOR UNKNOWN INDICATION
     Route: 065
     Dates: start: 20100118, end: 20100130
  27. CYTARABINE [Concomitant]
     Indication: DRUG USE FOR UNKNOWN INDICATION
     Route: 065
     Dates: start: 20100115, end: 20100116
  28. NEUPOGEN [Concomitant]
     Indication: DRUG USE FOR UNKNOWN INDICATION
     Route: 065
     Dates: start: 20100130, end: 20100130
  29. PERFALGAN [Concomitant]
     Indication: DRUG USE FOR UNKNOWN INDICATION
     Route: 065
     Dates: start: 20100131, end: 20100131
  30. VERGENTAN [Concomitant]
     Indication: DRUG USE FOR UNKNOWN INDICATION
     Route: 065
     Dates: start: 20100131, end: 20100131
  31. LORMETAZEPAM [Concomitant]
     Indication: DRUG USE FOR UNKNOWN INDICATION
     Route: 065
     Dates: start: 20100114, end: 20100127
  32. RED BLOOD CELLS [Concomitant]
     Indication: DRUG USE FOR UNKNOWN INDICATION
     Route: 065
     Dates: start: 20091101
  33. PLATELETS [Concomitant]
     Indication: DRUG USE FOR UNKNOWN INDICATION
     Route: 065
     Dates: start: 20091101

REACTIONS (3)
  - ACUTE HEPATIC FAILURE [None]
  - CARDIAC FAILURE ACUTE [None]
  - RENAL FAILURE ACUTE [None]
